FAERS Safety Report 9419095 (Version 1)
Quarter: 2013Q3

REPORT INFORMATION
  Report Type: Spontaneous
  Country: SE (occurrence: SE)
  Receive Date: 20130725
  Receipt Date: 20130725
  Transmission Date: 20140515
  Serious: Yes (Hospitalization)
  Sender: FDA-Public Use
  Company Number: SE-ABBOTT-13P-150-1121210-00

PATIENT
  Age: 86 Year
  Sex: Male

DRUGS (5)
  1. PROCREN DEPOT [Suspect]
     Indication: PROSTATE CANCER
     Route: 050
     Dates: start: 2005
  2. PANODIL [Concomitant]
     Indication: PAIN
     Dates: start: 201201
  3. PANODIL [Concomitant]
  4. CIPRAMIL [Concomitant]
     Indication: PRODUCT USED FOR UNKNOWN INDICATION
     Dosage: FOR THE NIGHT
  5. FURIX [Concomitant]
     Indication: DIURETIC THERAPY

REACTIONS (6)
  - Femur fracture [Recovered/Resolved with Sequelae]
  - Fall [Recovered/Resolved with Sequelae]
  - Dementia Alzheimer^s type [Unknown]
  - Catheter placement [Unknown]
  - Urinary tract infection [Unknown]
  - Device related infection [Unknown]
